FAERS Safety Report 8168241-8 (Version None)
Quarter: 2012Q1

REPORT INFORMATION
  Report Type: 
  Country: None (occurrence: None)
  Receive Date: 20120227
  Receipt Date: 20120224
  Transmission Date: 20120608
  Serious: Yes (Death, Hospitalization)
  Sender: FDA-Public Use
  Company Number: PHHY2010CN64477

PATIENT
  Sex: Female

DRUGS (19)
  1. OXA [Concomitant]
  2. NOVOLIN 70/30 [Concomitant]
  3. FUROSEMIDE [Concomitant]
  4. BAILING [Concomitant]
  5. SPIRONOLACTONE [Concomitant]
  6. VITAMIN B-12 [Concomitant]
  7. AIXI TE [Concomitant]
  8. URSODIOL [Concomitant]
  9. CHLOROQUINE PHOSPHATE [Concomitant]
  10. FOLIC ACID [Concomitant]
  11. PREDNISONE [Concomitant]
  12. ROCALTROL [Concomitant]
  13. BENEFITS BIOT [Concomitant]
  14. SODIUM BICARBONATE [Concomitant]
  15. TRILEPTAL [Suspect]
     Indication: EPILEPSY
     Dosage: UNK
  16. METOPROLOL [Concomitant]
     Dosage: UNK
  17. ADALAT [Concomitant]
  18. TERAZOSIN HCL [Concomitant]
  19. DI QIAO [Concomitant]

REACTIONS (22)
  - RENAL HYPERTENSION [None]
  - NEURALGIA [None]
  - POLYMYOSITIS [None]
  - DIABETES MELLITUS [None]
  - RENAL FAILURE ACUTE [None]
  - PERICARDIAL EFFUSION [None]
  - PLEURAL EFFUSION [None]
  - RENAL ATROPHY [None]
  - HYPERTENSION [None]
  - PRURITUS [None]
  - EYELID OEDEMA [None]
  - VISUAL ACUITY REDUCED [None]
  - MULTI-ORGAN FAILURE [None]
  - AZOTAEMIA [None]
  - LETHARGY [None]
  - SYSTEMIC LUPUS ERYTHEMATOSUS [None]
  - SPLENOMEGALY [None]
  - CARDIOMYOPATHY [None]
  - PYREXIA [None]
  - NEPHROPATHY [None]
  - VOMITING [None]
  - NEPHROGENIC ANAEMIA [None]
